FAERS Safety Report 9687025 (Version 3)
Quarter: 2013Q4

REPORT INFORMATION
  Report Type: Report from Study
  Country: AU (occurrence: AU)
  Receive Date: 20131113
  Receipt Date: 20131126
  Transmission Date: 20140711
  Serious: Yes (Death, Hospitalization)
  Sender: FDA-Public Use
  Company Number: PHHY2013AU129435

PATIENT
  Age: 72 Year
  Sex: Male

DRUGS (1)
  1. ACLASTA [Suspect]
     Indication: OSTEOPOROSIS
     Dosage: 5 MG, UNK
     Route: 042
     Dates: start: 20121211

REACTIONS (5)
  - Death [Fatal]
  - Cardiac failure acute [Unknown]
  - Mitral valve incompetence [Unknown]
  - Pneumonia [Unknown]
  - Atrial fibrillation [Unknown]
